FAERS Safety Report 8680633 (Version 2)
Quarter: 2012Q4

REPORT INFORMATION
  Report Type: 
  Country: US (occurrence: US)
  Receive Date: 20120724
  Receipt Date: 20121019
  Transmission Date: 20130627
  Serious: No
  Sender: FDA-Public Use
  Company Number: US-ASTRAZENECA-2012SE47898

PATIENT
  Age: 60 Year
  Sex: Male
  Weight: 81.6 kg

DRUGS (6)
  1. SYMBICORT [Suspect]
     Indication: ASTHMA
     Dosage: 80/4.5, 2 PUFF, TWICE A DAY
     Route: 055
  2. SYMBICORT [Suspect]
     Indication: ASTHMA
     Dosage: 80/4.5, 2 PUFF, AS NEEDED
     Route: 055
  3. PROVENTIL [Suspect]
     Route: 065
  4. METFORMIN [Concomitant]
  5. PLAVIX [Concomitant]
  6. LOSARTAN [Concomitant]

REACTIONS (2)
  - Malaise [Unknown]
  - Off label use [Unknown]
